FAERS Safety Report 5577808-2 (Version None)
Quarter: 2007Q4

REPORT INFORMATION
  Report Type: 
  Country: None (occurrence: None)
  Receive Date: 20071227
  Receipt Date: 20071206
  Transmission Date: 20080405
  Serious: Yes (Hospitalization)
  Sender: FDA-Public Use
  Company Number: 2007S1011157

PATIENT
  Age: 46 Year
  Sex: Female

DRUGS (1)
  1. ISOTRETINOIN [Suspect]
     Indication: ACNE
     Dosage: 40 MG; DAILY; ORAL
     Route: 048
     Dates: start: 20070601, end: 20071002

REACTIONS (1)
  - KIDNEY INFECTION [None]
